FAERS Safety Report 10150307 (Version 2)
Quarter: 2014Q2

REPORT INFORMATION
  Report Type: Report from Study
  Country: GB (occurrence: GB)
  Receive Date: 20140502
  Receipt Date: 20140502
  Transmission Date: 20141212
  Serious: Yes (Hospitalization)
  Sender: FDA-Public Use
  Company Number: GB-BRISTOL-MYERS SQUIBB COMPANY-20139697

PATIENT
  Age: 52 Year
  Sex: Female

DRUGS (1)
  1. ORENCIA FOR INJ [Suspect]
     Indication: RHEUMATOID ARTHRITIS
     Dosage: PREFILLED SYRINGE
     Route: 058

REACTIONS (2)
  - Gallbladder disorder [Unknown]
  - Urinary tract infection [Unknown]
